FAERS Safety Report 22244668 (Version 2)
Quarter: 2023Q2

REPORT INFORMATION
  Report Type: Spontaneous
  Country: US (occurrence: US)
  Receive Date: 20230424
  Receipt Date: 20230602
  Transmission Date: 20230722
  Serious: Yes (Other)
  Sender: FDA-Public Use
  Company Number: US-CELLTRION INC.-2023US008314

PATIENT

DRUGS (5)
  1. TRUXIMA [Suspect]
     Active Substance: RITUXIMAB-ABBS
     Indication: Polymyositis
     Dosage: 1000 MG Q 6 MONTHS
     Route: 042
     Dates: start: 20230419
  2. TRUXIMA [Suspect]
     Active Substance: RITUXIMAB-ABBS
     Dosage: 1000 MG
     Route: 042
     Dates: start: 20230504
  3. CELLCEPT [Concomitant]
     Active Substance: MYCOPHENOLATE MOFETIL
  4. METHOTREXATE [Concomitant]
     Active Substance: METHOTREXATE
  5. PREDNISONE [Concomitant]
     Active Substance: PREDNISONE

REACTIONS (2)
  - Polymyositis [Unknown]
  - Off label use [Unknown]
